FAERS Safety Report 10065585 (Version 1)
Quarter: 2014Q2

REPORT INFORMATION
  Report Type: Spontaneous
  Country: US (occurrence: US)
  Receive Date: 20140408
  Receipt Date: 20140408
  Transmission Date: 20141212
  Serious: No
  Sender: FDA-Public Use
  Company Number: US-SANOFI-AVENTIS-2013SA062362

PATIENT
  Age: 49 Year
  Sex: Female

DRUGS (1)
  1. ELITEK [Suspect]
     Indication: TUMOUR LYSIS SYNDROME

REACTIONS (1)
  - Blood uric acid decreased [Not Recovered/Not Resolved]
